FAERS Safety Report 5880441-6 (Version None)
Quarter: 2008Q3

REPORT INFORMATION
  Report Type: 
  Country: None (occurrence: None)
  Receive Date: 20080912
  Receipt Date: 20080707
  Transmission Date: 20090109
  Serious: No
  Sender: FDA-Public Use
  Company Number: US-ABBOTT-08P-163-0441693-00

PATIENT
  Sex: Female
  Weight: 70.824 kg

DRUGS (1)
  1. HUMIRA [Suspect]
     Indication: CROHN'S DISEASE
     Route: 058
     Dates: start: 20070401

REACTIONS (14)
  - ACCIDENTAL EXPOSURE [None]
  - AURICULAR SWELLING [None]
  - DERMATITIS [None]
  - EAR PAIN [None]
  - FATIGUE [None]
  - HEADACHE [None]
  - NECK PAIN [None]
  - OROPHARYNGEAL PAIN [None]
  - PAIN [None]
  - PAIN IN EXTREMITY [None]
  - PHARYNGEAL OEDEMA [None]
  - SALIVARY GLAND CALCULUS [None]
  - SENSATION OF HEAVINESS [None]
  - VAGINAL HAEMORRHAGE [None]
